FAERS Safety Report 12466126 (Version 1)
Quarter: 2016Q2

REPORT INFORMATION
  Report Type: Spontaneous
  Country: DE (occurrence: DE)
  Receive Date: 20160614
  Receipt Date: 20160614
  Transmission Date: 20160815
  Serious: Yes (Congenital Anomaly)
  Sender: FDA-Public Use
  Company Number: GXKR2016DE002739

PATIENT

DRUGS (3)
  1. LAMOTRIGINE. [Suspect]
     Active Substance: LAMOTRIGINE
     Indication: EPILEPSY
     Dosage: 500 MG/DAY
     Route: 064
     Dates: start: 20150115, end: 20150626
  2. TOPIRAMATE. [Suspect]
     Active Substance: TOPIRAMATE
     Indication: EPILEPSY
     Dosage: 100 [MG/D ]/ UNTIL WEEK 10: 50MG/D, FROM WEEK 11: 100MG/D
     Route: 064
     Dates: start: 20150115, end: 20150626
  3. TAVOR (LORAZEPAM) [Concomitant]
     Active Substance: LORAZEPAM
     Indication: EPILEPSY
     Dosage: ON DEMAND, TRIMESTER UNKNOWN
     Route: 064

REACTIONS (5)
  - Patent ductus arteriosus [Recovered/Resolved]
  - Cardiac malposition [Not Recovered/Not Resolved]
  - Atrial septal defect [Not Recovered/Not Resolved]
  - Anomalous pulmonary venous connection [Not Recovered/Not Resolved]
  - Persistent left superior vena cava [Not Recovered/Not Resolved]

NARRATIVE: CASE EVENT DATE: 20151014
